FAERS Safety Report 23618689 (Version 1)
Quarter: 2024Q1

REPORT INFORMATION
  Report Type: Report from Study
  Country: US (occurrence: US)
  Receive Date: 20240311
  Receipt Date: 20240311
  Transmission Date: 20240409
  Serious: Yes (Other)
  Sender: FDA-Public Use
  Company Number: US-ABBVIE-5671694

PATIENT
  Sex: Male

DRUGS (1)
  1. RINVOQ [Suspect]
     Active Substance: UPADACITINIB
     Indication: Rheumatoid arthritis
     Route: 048
     Dates: start: 20231127

REACTIONS (6)
  - Cardiac pacemaker insertion [Unknown]
  - Pruritus [Unknown]
  - Coeliac disease [Unknown]
  - Drug hypersensitivity [Unknown]
  - Skin ulcer [Unknown]
  - Erythema [Unknown]
